FAERS Safety Report 8257313-5 (Version None)
Quarter: 2012Q2

REPORT INFORMATION
  Report Type: 
  Country: None (occurrence: None)
  Receive Date: 20120403
  Receipt Date: 20120402
  Transmission Date: 20120825
  Serious: Yes (Other)
  Sender: FDA-Public Use
  Company Number: FR-GENZYME-MOZO-1000671

PATIENT
  Sex: Male
  Weight: 86 kg

DRUGS (7)
  1. GRANOCYTE [Suspect]
     Indication: ACUTE MYELOID LEUKAEMIA
     Dosage: 430 MCG, QD
     Route: 042
     Dates: start: 20120222, end: 20120222
  2. NEFOPAM [Concomitant]
     Indication: BONE PAIN
     Dosage: 120 MG, QD
     Route: 065
     Dates: start: 20120220
  3. MORPHINE [Concomitant]
     Indication: BONE PAIN
     Route: 042
  4. MOZOBIL [Suspect]
     Indication: ACUTE MYELOID LEUKAEMIA
     Dosage: 15840 MCG, QD
     Route: 042
     Dates: start: 20120222, end: 20120222
  5. OXYCODONE HCL [Concomitant]
     Indication: BONE PAIN
     Dosage: 20 MG, QD
     Route: 065
     Dates: start: 20120221
  6. CYTARABINE [Concomitant]
     Indication: ACUTE MYELOID LEUKAEMIA
     Dosage: 1 G, QD
     Route: 042
     Dates: start: 20120222
  7. DAUNORUBICIN HCL [Concomitant]
     Indication: ACUTE MYELOID LEUKAEMIA
     Dosage: 120 MG, QD
     Route: 042
     Dates: start: 20120222

REACTIONS (4)
  - INSOMNIA [None]
  - BONE PAIN [None]
  - CONDITION AGGRAVATED [None]
  - REFUSAL OF TREATMENT BY PATIENT [None]
